FAERS Safety Report 24889234 (Version 1)
Quarter: 2025Q1

REPORT INFORMATION
  Report Type: Spontaneous
  Country: US (occurrence: US)
  Receive Date: 20250127
  Receipt Date: 20250127
  Transmission Date: 20250409
  Serious: Yes (Other)
  Sender: MYLAN
  Company Number: US-MYLANLABS-2025M1006727

PATIENT
  Age: 4 Year
  Sex: Female

DRUGS (16)
  1. VALPROIC ACID [Suspect]
     Active Substance: VALPROIC ACID
     Indication: Lennox-Gastaut syndrome
     Route: 065
  2. DIAZEPAM [Suspect]
     Active Substance: DIAZEPAM
     Indication: Lennox-Gastaut syndrome
     Route: 054
  3. VIGABATRIN [Suspect]
     Active Substance: VIGABATRIN
     Indication: Lennox-Gastaut syndrome
     Route: 065
  4. CANNABIDIOL [Suspect]
     Active Substance: CANNABIDIOL
     Indication: Lennox-Gastaut syndrome
     Route: 065
  5. CANNABIDIOL [Suspect]
     Active Substance: CANNABIDIOL
     Dosage: 240 MILLIGRAM, QD
     Route: 065
  6. CANNABIDIOL [Suspect]
     Active Substance: CANNABIDIOL
     Dosage: 360 MILLIGRAM, QD
     Route: 065
  7. CLOBAZAM [Suspect]
     Active Substance: CLOBAZAM
     Indication: Lennox-Gastaut syndrome
     Route: 065
  8. LACOSAMIDE [Suspect]
     Active Substance: LACOSAMIDE
     Indication: Lennox-Gastaut syndrome
     Route: 065
  9. PERAMPANEL [Suspect]
     Active Substance: PERAMPANEL
     Indication: Lennox-Gastaut syndrome
     Route: 065
  10. ZONISAMIDE [Suspect]
     Active Substance: ZONISAMIDE
     Indication: Lennox-Gastaut syndrome
     Dosage: 50 MILLIGRAM, QD
     Route: 065
  11. FENFLURAMINE [Concomitant]
     Active Substance: FENFLURAMINE
     Indication: Lennox-Gastaut syndrome
     Dosage: 4.4 MILLIGRAM, QD
     Route: 065
  12. FENFLURAMINE [Concomitant]
     Active Substance: FENFLURAMINE
     Dosage: 7.92 MILLIGRAM, QD
     Route: 065
  13. FENFLURAMINE [Concomitant]
     Active Substance: FENFLURAMINE
     Dosage: 14.08 MILLIGRAM, QD
     Route: 065
  14. FELBAMATE [Concomitant]
     Active Substance: FELBAMATE
     Indication: Lennox-Gastaut syndrome
     Dosage: 1500 MILLIGRAM, QD
     Route: 065
  15. FELBAMATE [Concomitant]
     Active Substance: FELBAMATE
     Dosage: 1440 MILLIGRAM, QD
     Route: 065
  16. FELBAMATE [Concomitant]
     Active Substance: FELBAMATE
     Dosage: 1680 MILLIGRAM, QD
     Route: 065

REACTIONS (1)
  - Drug ineffective [Unknown]
